FAERS Safety Report 7181245-7 (Version None)
Quarter: 2010Q4

REPORT INFORMATION
  Report Type: 
  Country: None (occurrence: None)
  Receive Date: 20101221
  Receipt Date: 20100420
  Transmission Date: 20110411
  Serious: Yes (Other)
  Sender: FDA-Public Use
  Company Number: US-AMGEN-KDL407623

PATIENT

DRUGS (1)
  1. ENBREL [Suspect]
     Indication: RHEUMATOID ARTHRITIS
     Dosage: 50 MG, QWK
     Route: 058
     Dates: start: 20070101

REACTIONS (6)
  - DEPRESSION [None]
  - FATIGUE [None]
  - INSOMNIA [None]
  - RHEUMATOID ARTHRITIS [None]
  - SINUSITIS [None]
  - STRESS [None]
